FAERS Safety Report 10697434 (Version 1)
Quarter: 2015Q1

REPORT INFORMATION
  Report Type: Spontaneous
  Country: US (occurrence: None)
  Receive Date: 20150107
  Receipt Date: 20150107
  Transmission Date: 20150721
  Serious: No
  Sender: FDA-Public Use
  Company Number: None

PATIENT
  Sex: Female

DRUGS (1)
  1. SEPTOCAINE [Suspect]
     Active Substance: ARTICAINE HYDROCHLORIDE\EPINEPHRINE BITARTRATE
     Dosage: 2 CARPULES 40MG EACH QOW-GATES MANDIBULAR BLOCK

REACTIONS (7)
  - Paraesthesia [None]
  - Hypoaesthesia [None]
  - Post procedural complication [None]
  - Injection site infection [None]
  - Sensory loss [None]
  - Post procedural infection [None]
  - Drug effect prolonged [None]
